FAERS Safety Report 24126693 (Version 4)
Quarter: 2025Q2

REPORT INFORMATION
  Report Type: Report from Study
  Country: US (occurrence: US)
  Receive Date: 20240723
  Receipt Date: 20250423
  Transmission Date: 20250716
  Serious: Yes (Hospitalization, Other)
  Sender: UCB
  Company Number: US-UCBSA-2023041673

PATIENT
  Age: 2 Year
  Sex: Male
  Weight: 18.8 kg

DRUGS (9)
  1. FINTEPLA [Suspect]
     Active Substance: FENFLURAMINE
     Indication: Lennox-Gastaut syndrome
     Dosage: 2 MILLILITER, 2X/DAY (BID)
     Dates: start: 20221025
  2. FINTEPLA [Suspect]
     Active Substance: FENFLURAMINE
     Dates: start: 20221028
  3. FINTEPLA [Suspect]
     Active Substance: FENFLURAMINE
     Dosage: 2 MILLILITER, 2X/DAY (BID)
  4. FINTEPLA [Suspect]
     Active Substance: FENFLURAMINE
     Dosage: 2 MILLILITER, 2X/DAY (BID)
     Route: 048
  5. FINTEPLA [Suspect]
     Active Substance: FENFLURAMINE
     Dosage: 2 MILLILITER, 2X/DAY (BID)
  6. FINTEPLA [Suspect]
     Active Substance: FENFLURAMINE
     Dosage: 2 MILLILITER, 2X/DAY (BID)
     Dates: start: 2024
  7. FINTEPLA [Suspect]
     Active Substance: FENFLURAMINE
     Dosage: 2 MILLILITER, 2X/DAY (BID)
  8. FINTEPLA [Suspect]
     Active Substance: FENFLURAMINE
     Dosage: 2 MILLILITER, 2X/DAY (BID)
  9. FINTEPLA [Suspect]
     Active Substance: FENFLURAMINE
     Dosage: 1.5 MILLILITER, 2X/DAY (BID)
     Route: 048

REACTIONS (5)
  - Hospitalisation [Recovered/Resolved]
  - Seizure [Not Recovered/Not Resolved]
  - Sleep disorder [Not Recovered/Not Resolved]
  - Vagal nerve stimulator implantation [Not Recovered/Not Resolved]
  - Aortic dilatation [Not Recovered/Not Resolved]

NARRATIVE: CASE EVENT DATE: 20230101
